FAERS Safety Report 7658719-5 (Version None)
Quarter: 2011Q3

REPORT INFORMATION
  Report Type: 
  Country: None (occurrence: None)
  Receive Date: 20110805
  Receipt Date: 20110722
  Transmission Date: 20111222
  Serious: Yes (Hospitalization, Other)
  Sender: FDA-Public Use
  Company Number: US-PFIZER INC-US-WYE-H18501010

PATIENT
  Sex: Female
  Weight: 45.351 kg

DRUGS (3)
  1. PRISTIQ [Suspect]
     Indication: DEPRESSION
     Dosage: 50 MG, DAILY
     Route: 048
     Dates: end: 20110701
  2. PREMARIN [Suspect]
     Indication: ATROPHIC VULVOVAGINITIS
     Dosage: UNK, THREE TIMES A WEEK AT BEDTIME
     Route: 067
  3. LYRICA [Suspect]
     Indication: FIBROMYALGIA
     Dosage: 100 MG, DAILY
     Route: 048

REACTIONS (8)
  - BRAIN NEOPLASM MALIGNANT [None]
  - SURGERY [None]
  - DEPRESSION [None]
  - INTERVERTEBRAL DISC DISORDER [None]
  - ANORECTAL DISORDER [None]
  - MYOCARDIAL INFARCTION [None]
  - DRUG INEFFECTIVE [None]
  - CARDIAC DISORDER [None]
